FAERS Safety Report 21388913 (Version 1)
Quarter: 2022Q3

REPORT INFORMATION
  Report Type: Spontaneous
  Country: US (occurrence: None)
  Receive Date: 20220927
  Receipt Date: 20220927
  Transmission Date: 20221026
  Serious: No
  Sender: FDA-Public Use
  Company Number: None

PATIENT
  Sex: Female

DRUGS (1)
  1. TARGRETIN [Suspect]
     Active Substance: BEXAROTENE
     Dosage: FREQUENCY : DAILY;?
     Route: 048

REACTIONS (7)
  - Dizziness [None]
  - Abdominal pain [None]
  - Transitional cell carcinoma [None]
  - Metastases to bone [None]
  - Metastases to lung [None]
  - Metastases to liver [None]
  - Back pain [None]
